FAERS Safety Report 4422596-6 (Version None)
Quarter: 2004Q3

REPORT INFORMATION
  Report Type: 
  Country: None (occurrence: None)
  Receive Date: 20040713
  Receipt Date: 20030609
  Transmission Date: 20050211
  Serious: No
  Sender: FDA-Public Use
  Company Number: PHEH2003US04175

PATIENT
  Age: 6 Month
  Sex: Male
  Weight: 6.8 kg

DRUGS (1)
  1. ELIDEL [Suspect]
     Indication: ECZEMA
     Dosage: BID, TOPICAL
     Route: 061
     Dates: start: 20030101, end: 20030517

REACTIONS (3)
  - PYREXIA [None]
  - RASH [None]
  - SKIN DISCOLOURATION [None]
